FAERS Safety Report 8287291-4 (Version None)
Quarter: 2012Q2

REPORT INFORMATION
  Report Type: 
  Country: None (occurrence: None)
  Receive Date: 20120416
  Receipt Date: 20120416
  Transmission Date: 20120825
  Serious: Yes (Life-Threatening, Hospitalization)
  Sender: FDA-Public Use
  Company Number: None

PATIENT
  Sex: Female
  Weight: 86.182 kg

DRUGS (4)
  1. BUDESONIDE [Concomitant]
  2. HYDROCODONE BITARTRATE [Concomitant]
  3. OMEPRAZOLE [Concomitant]
  4. ZOLPIDEM TARTRATE [Suspect]
     Dosage: 1/2 TO 1 PILL
     Route: 048

REACTIONS (7)
  - TIBIA FRACTURE [None]
  - FIBULA FRACTURE [None]
  - SOMNAMBULISM [None]
  - RIB FRACTURE [None]
  - ANKLE FRACTURE [None]
  - HUMERUS FRACTURE [None]
  - FALL [None]
